FAERS Safety Report 5227034-1 (Version None)
Quarter: 2007Q1

REPORT INFORMATION
  Report Type: 
  Country: None (occurrence: None)
  Receive Date: 20070201
  Receipt Date: 20070201
  Transmission Date: 20070707
  Serious: Yes (Death)
  Sender: FDA-Public Use
  Company Number: None

PATIENT
  Sex: Female
  Weight: 66.9 kg

DRUGS (6)
  1. GEMCITABINE HCL [Suspect]
     Dosage: 765 MG
     Dates: end: 20061226
  2. DIGOXIN [Concomitant]
  3. FUROSEMIDE [Concomitant]
  4. LISINOPRIL [Concomitant]
  5. METOPROLOL [Concomitant]
  6. PROBENECID [Concomitant]

REACTIONS (7)
  - ASTHENIA [None]
  - BRAIN NATRIURETIC PEPTIDE INCREASED [None]
  - GOUTY ARTHRITIS [None]
  - NEPHRITIS INTERSTITIAL [None]
  - PLATELET COUNT DECREASED [None]
  - PLEURAL EFFUSION [None]
  - RENAL FAILURE ACUTE [None]
